FAERS Safety Report 20722166 (Version 3)
Quarter: 2022Q3

REPORT INFORMATION
  Report Type: Spontaneous
  Country: JP (occurrence: JP)
  Receive Date: 20220418
  Receipt Date: 20220712
  Transmission Date: 20221026
  Serious: No
  Sender: FDA-Public Use
  Company Number: JP-MALLINCKRODT-T202201828

PATIENT
  Age: 0 Year
  Sex: Female
  Weight: 1 kg

DRUGS (16)
  1. NITRIC OXIDE [Suspect]
     Active Substance: NITRIC OXIDE
     Indication: Pulmonary hypertension
     Dosage: 20 PPM, CONTINUOUS, VIA INHALATION
     Route: 055
     Dates: start: 20220313, end: 20220330
  2. NITRIC OXIDE [Suspect]
     Active Substance: NITRIC OXIDE
     Indication: Chronic respiratory disease
     Dosage: 20 PPM, CONTINUOUS, VIA INHALATION
     Route: 055
     Dates: start: 20220330, end: 20220413
  3. FENTANYL [Concomitant]
     Active Substance: FENTANYL
     Indication: Anaesthesia
     Dosage: UNK
     Route: 065
  4. VENOGLOBULIN [Concomitant]
     Active Substance: HUMAN IMMUNOGLOBULIN G
     Indication: Product used for unknown indication
     Dosage: UNK
     Route: 065
  5. SODIUM PHOSPHATE [Concomitant]
     Active Substance: SODIUM PHOSPHATE
     Indication: Osteopenia
     Dosage: 1.5 MILLILITER, PERSISTENT, (DRIP INFUSION)
     Route: 041
     Dates: start: 20220314
  6. AMIKACIN [Concomitant]
     Active Substance: AMIKACIN
     Indication: Antibiotic therapy
     Dosage: UNK
     Route: 065
  7. SOLU-CORTEF [Concomitant]
     Active Substance: HYDROCORTISONE SODIUM SUCCINATE
     Indication: Chronic respiratory disease
     Dosage: 1 MILLIGRAM, TID, RAPID
     Route: 065
     Dates: start: 20220313, end: 20220514
  8. AMPICILLIN [Concomitant]
     Active Substance: AMPICILLIN
     Indication: Product used for unknown indication
     Dosage: UNK
     Route: 065
  9. MEYLON [Concomitant]
     Active Substance: SODIUM BICARBONATE
     Indication: Product used for unknown indication
     Dosage: UNK
     Route: 042
  10. FOSFLUCONAZOLE [Concomitant]
     Active Substance: FOSFLUCONAZOLE
     Indication: Fungal infection
     Dosage: 4 MILLIGRAM, ONCE (BIW) (DRIP INFUSION)
     Route: 041
     Dates: start: 20220313, end: 20220514
  11. NITROGLYCERIN [Concomitant]
     Active Substance: NITROGLYCERIN
     Indication: Product used for unknown indication
     Dosage: UNK
     Route: 065
  12. AMPICILLIN SODIUM\SULBACTAM SODIUM [Concomitant]
     Active Substance: AMPICILLIN SODIUM\SULBACTAM SODIUM
     Indication: Product used for unknown indication
     Dosage: UNK
     Route: 065
  13. LASIX [Concomitant]
     Active Substance: FUROSEMIDE
     Indication: Chronic respiratory disease
     Dosage: 3.3 MILLIGRAM, PERSISTENT, RAPID
     Route: 065
     Dates: start: 20220314, end: 20220505
  14. FAMOTIDINE [Concomitant]
     Active Substance: FAMOTIDINE
     Indication: Gastric mucosal lesion
     Dosage: 0.4 MILLIGRAM, BID, RAPID
     Route: 065
     Dates: start: 20220318, end: 20220514
  15. MENATETRENONE [Concomitant]
     Active Substance: MENATETRENONE
     Indication: Vitamin K deficiency
     Dosage: 1 MILLILITER, 1 DOSE PER DAY, INTUBATION/RAPID
     Route: 065
     Dates: start: 20220313
  16. SALINE [Concomitant]
     Active Substance: SODIUM CHLORIDE
     Indication: Product used for unknown indication
     Dosage: 4.8 MILLILITER, PERSISTENT (DRIP INFUSION)
     Route: 041
     Dates: start: 20220313

REACTIONS (1)
  - Faeces discoloured [Recovered/Resolved]

NARRATIVE: CASE EVENT DATE: 20220320
